FAERS Safety Report 12482214 (Version 2)
Quarter: 2016Q2

REPORT INFORMATION
  Report Type: Spontaneous
  Country: CN (occurrence: CN)
  Receive Date: 20160620
  Receipt Date: 20160627
  Transmission Date: 20160815
  Serious: No
  Sender: FDA-Public Use
  Company Number: CN-009507513-1512CHN008575

PATIENT
  Age: 40 Year
  Sex: Female
  Weight: 54 kg

DRUGS (15)
  1. GLUTATHIONE [Concomitant]
     Active Substance: GLUTATHIONE
     Indication: ANAEMIA
     Dosage: 1.8 G, QD
     Route: 042
     Dates: start: 20151119, end: 20151120
  2. FERROUS SULFATE (+) FOLIC ACID [Concomitant]
     Indication: ANAEMIA
     Dosage: 200 MG, TID
     Route: 048
     Dates: start: 20151116, end: 20151120
  3. VITAMIN B6 [Concomitant]
     Active Substance: PYRIDOXINE HYDROCHLORIDE
     Indication: PROPHYLAXIS OF NAUSEA AND VOMITING
     Dosage: 200 MG, QD
     Route: 042
     Dates: start: 20151119, end: 20151120
  4. QI JIAO SHENG BAI JIAO NANG [Concomitant]
     Indication: IMMUNE ENHANCEMENT THERAPY
     Dosage: 2 G, TID
     Route: 048
     Dates: start: 20151115, end: 20151120
  5. GRANULOCYTE COLONY STIMULATING FACTOR (UNSPECIFIED) [Concomitant]
     Active Substance: FILGRASTIM
     Indication: BONE MARROW DISORDER
     Dosage: TOTAL DAILY DOSE 150 UG/MCG
     Route: 058
     Dates: start: 20151116, end: 20151117
  6. TROPISETRON HYDROCHLORIDE [Concomitant]
     Active Substance: TROPISETRON HYDROCHLORIDE
     Indication: PROPHYLAXIS OF NAUSEA AND VOMITING
     Dosage: 4 MG, BID
     Route: 042
     Dates: start: 20151119, end: 20151119
  7. CISPLATIN. [Concomitant]
     Active Substance: CISPLATIN
     Indication: CHEMOTHERAPY
     Dosage: 100 MG, CYCLICAL, TREATMENT REGIMEN PMV,  TREATMENT CYCLE 2
     Route: 042
     Dates: start: 20151119, end: 20151119
  8. MITOMYCIN. [Concomitant]
     Active Substance: MITOMYCIN
     Indication: CHEMOTHERAPY
     Dosage: 16 MG, CYCLICAL, TREATMENT CYCLE 2
     Route: 041
     Dates: start: 20151119, end: 20151119
  9. ESTAZOLAM. [Concomitant]
     Active Substance: ESTAZOLAM
     Indication: INSOMNIA
     Dosage: 1 MG, QD
     Route: 048
     Dates: start: 20151115, end: 20151115
  10. THYMOPENTIN [Concomitant]
     Active Substance: THYMOPENTIN
     Indication: IMMUNE ENHANCEMENT THERAPY
     Dosage: 10 MG, QD
     Route: 058
     Dates: start: 20151119, end: 20151120
  11. VINCRISTINE SULFATE. [Concomitant]
     Active Substance: VINCRISTINE SULFATE
     Indication: CHEMOTHERAPY
     Dosage: 2 MG, CYCLICAL; TREATMENT REGIMEN: PMV; TREATMENT CYCLE 2
     Route: 042
     Dates: start: 20151119, end: 20151119
  12. VITAMIN C [Concomitant]
     Active Substance: ASCORBIC ACID
     Indication: IMMUNE ENHANCEMENT THERAPY
     Dosage: 2 G, QD
     Route: 042
     Dates: start: 20151119, end: 20151120
  13. EMEND [Suspect]
     Active Substance: APREPITANT
     Indication: PROPHYLAXIS OF NAUSEA AND VOMITING
     Dosage: 125 MG, ONCE, DAY 1
     Route: 048
     Dates: start: 20151119, end: 20151119
  14. EMEND [Suspect]
     Active Substance: APREPITANT
     Dosage: 80 MG, QD, DAY 2 AND DAY 3
     Route: 048
     Dates: start: 20151120, end: 20151121
  15. PHOSPHATIDYL CHOLINE [Concomitant]
     Active Substance: LECITHIN
     Indication: PROPHYLAXIS OF NAUSEA AND VOMITING
     Dosage: 465 MG, BID
     Route: 042
     Dates: start: 20151119, end: 20151120

REACTIONS (3)
  - Nausea [Recovered/Resolved]
  - White blood cell count decreased [Recovering/Resolving]
  - Constipation [Not Recovered/Not Resolved]

NARRATIVE: CASE EVENT DATE: 20151124
